FAERS Safety Report 7934304-2 (Version None)
Quarter: 2011Q4

REPORT INFORMATION
  Report Type: 
  Country: None (occurrence: None)
  Receive Date: 20111122
  Receipt Date: 20111116
  Transmission Date: 20120403
  Serious: Yes (Hospitalization, Other)
  Sender: FDA-Public Use
  Company Number: US-TEVA-304653USA

PATIENT
  Sex: Female

DRUGS (2)
  1. COPAXONE [Suspect]
     Indication: MULTIPLE SCLEROSIS
     Dosage: 20 MILLIGRAM;
     Route: 058
     Dates: start: 20110929, end: 20111011
  2. BENADRYL [Suspect]
     Dosage: 4 TABLET;
     Route: 048
     Dates: start: 20111010, end: 20111010

REACTIONS (7)
  - ANAPHYLACTIC REACTION [None]
  - LIP SWELLING [None]
  - PULSE ABSENT [None]
  - UNRESPONSIVE TO STIMULI [None]
  - HYPOTENSION [None]
  - URTICARIA [None]
  - LOSS OF CONSCIOUSNESS [None]
